FAERS Safety Report 9027188 (Version 2)
Quarter: 2014Q2

REPORT INFORMATION
  Report Type: Report from Study
  Country: NL (occurrence: NL)
  Receive Date: 20130123
  Receipt Date: 20140414
  Transmission Date: 20141212
  Serious: Yes (Hospitalization)
  Sender: FDA-Public Use
  Company Number: NL-ELI_LILLY_AND_COMPANY-NL201301003980

PATIENT
  Sex: Female
  Weight: 84 kg

DRUGS (10)
  1. TERIPARATIDE [Suspect]
     Indication: OSTEOPOROSIS
     Dosage: 20 UG, QD
     Route: 058
     Dates: start: 20120918, end: 20121011
  2. TERIPARATIDE [Suspect]
     Dosage: 20 UG, QD
     Route: 058
     Dates: start: 20121214
  3. ACETYLSALICYLIC ACID [Concomitant]
     Dosage: UNK
     Route: 048
  4. CALCIUM CARBONATE W/COLECALCIFEROL [Concomitant]
     Indication: OSTEOPOROSIS
     Dosage: UNK, UNKNOWN
     Route: 048
  5. DICLOFENAC SODIUM [Concomitant]
     Indication: PAIN
     Dosage: UNK, UNKNOWN
     Route: 065
  6. AMITRIPTYLINE [Concomitant]
     Indication: PAIN
     Dosage: UNK, UNKNOWN
     Route: 065
     Dates: start: 20121012
  7. HYDROCHLOORTHIAZIDE [Concomitant]
     Indication: HYPERTENSION
     Dosage: UNK, UNKNOWN
     Route: 048
  8. PANTOPRAZOL [Concomitant]
     Dosage: UNK, UNKNOWN
     Route: 048
  9. PARACETAMOL [Concomitant]
     Indication: PAIN
     Dosage: UNK
     Route: 048
  10. PERINDOPRIL [Concomitant]
     Indication: HYPERTENSION
     Dosage: UNK, UNKNOWN
     Route: 065

REACTIONS (4)
  - Hip fracture [Unknown]
  - Fall [Unknown]
  - Injection site bruising [Unknown]
  - Drug ineffective [Unknown]
